FAERS Safety Report 22951940 (Version 3)
Quarter: 2024Q3

REPORT INFORMATION
  Report Type: Report from Study
  Country: US (occurrence: US)
  Receive Date: 20230918
  Receipt Date: 20240808
  Transmission Date: 20241017
  Serious: No
  Sender: BIOVITRUM
  Company Number: US-BIOVITRUM-2023-US-014869

PATIENT
  Age: 56 Year
  Sex: Female

DRUGS (2)
  1. KINERET [Suspect]
     Active Substance: ANAKINRA
     Indication: Amyloidosis
     Dosage: 100 MG, DAILY
     Route: 058
     Dates: start: 20230811
  2. KINERET [Suspect]
     Active Substance: ANAKINRA
     Indication: Rheumatoid arthritis

REACTIONS (3)
  - Injection site reaction [Unknown]
  - Sleep disorder [Unknown]
  - Illness [Unknown]
